FAERS Safety Report 25671949 (Version 4)
Quarter: 2025Q3

REPORT INFORMATION
  Report Type: Spontaneous
  Country: IL (occurrence: IL)
  Receive Date: 20250812
  Receipt Date: 20250911
  Transmission Date: 20251020
  Serious: Yes (Hospitalization, Other)
  Sender: BIOMARIN
  Company Number: IL-Medison-001486

PATIENT
  Sex: Male
  Weight: 3.75 kg

DRUGS (1)
  1. VOXZOGO [Suspect]
     Active Substance: VOSORITIDE
     Indication: Osteochondrodysplasia
     Dosage: UNK, QD
     Dates: start: 20250518

REACTIONS (4)
  - Obstructive airways disorder [Recovering/Resolving]
  - Underweight [Not Recovered/Not Resolved]
  - Eating disorder [Recovering/Resolving]
  - Weight decreased [Recovering/Resolving]

NARRATIVE: CASE EVENT DATE: 20250817
